FAERS Safety Report 4354861-5 (Version None)
Quarter: 2004Q2

REPORT INFORMATION
  Report Type: 
  Country: None (occurrence: None)
  Receive Date: 20040507
  Receipt Date: 20040503
  Transmission Date: 20050107
  Serious: Yes (Hospitalization)
  Sender: FDA-Public Use
  Company Number: US-BRISTOL-MYERS SQUIBB COMPANY-12577805

PATIENT
  Sex: Female

DRUGS (2)
  1. ERBITUX [Suspect]
     Indication: COLORECTAL CANCER METASTATIC
     Route: 042
     Dates: start: 20040430, end: 20040430
  2. BENADRYL [Concomitant]
     Indication: PREMEDICATION
     Dates: start: 20040430, end: 20040430

REACTIONS (2)
  - CYANOSIS [None]
  - DISORIENTATION [None]
